FAERS Safety Report 5170808-6 (Version None)
Quarter: 2006Q4

REPORT INFORMATION
  Report Type: 
  Country: None (occurrence: None)
  Receive Date: 20061206
  Receipt Date: 20061206
  Transmission Date: 20070319
  Serious: Yes (Life-Threatening, Hospitalization)
  Sender: FDA-Public Use
  Company Number: None

PATIENT
  Age: 23 Year
  Sex: Female
  Weight: 58.9676 kg

DRUGS (2)
  1. PAXIL [Suspect]
     Indication: ANXIETY
     Dosage: 10 MG ONCE A DAY PO
     Route: 048
     Dates: start: 20060110, end: 20060610
  2. PAXIL [Suspect]
     Indication: DEPRESSION
     Dosage: 10 MG ONCE A DAY PO
     Route: 048
     Dates: start: 20060110, end: 20060610

REACTIONS (6)
  - AGGRESSION [None]
  - ALCOHOLISM [None]
  - CONDUCT DISORDER [None]
  - DRUG WITHDRAWAL SYNDROME [None]
  - JUDGEMENT IMPAIRED [None]
  - SUICIDAL IDEATION [None]
